FAERS Safety Report 14288464 (Version 1)
Quarter: 2017Q4

REPORT INFORMATION
  Report Type: Spontaneous
  Country: FR (occurrence: FR)
  Receive Date: 20171215
  Receipt Date: 20171215
  Transmission Date: 20180321
  Serious: Yes (Other)
  Sender: FDA-Public Use
  Company Number: FR-SUN PHARMACEUTICAL INDUSTRIES LTD-2017R1-151797

PATIENT
  Age: 8 Decade
  Sex: Male

DRUGS (3)
  1. CLOBETASOL PROPIONATE. [Suspect]
     Active Substance: CLOBETASOL PROPIONATE
     Dosage: UNK
     Route: 061
  2. METHOTREXATE. [Suspect]
     Active Substance: METHOTREXATE
     Indication: PEMPHIGOID
     Dosage: 10 MG, 1/WEEK (LOW-DOSE)
     Route: 048
  3. CLOBETASOL PROPIONATE. [Suspect]
     Active Substance: CLOBETASOL PROPIONATE
     Indication: PEMPHIGOID
     Dosage: 30 G, DAILY
     Route: 061

REACTIONS (3)
  - Kaposi^s sarcoma [Recovered/Resolved]
  - Disease recurrence [Recovered/Resolved]
  - Human herpesvirus 8 infection [Unknown]
